FAERS Safety Report 17200436 (Version 2)
Quarter: 2020Q1

REPORT INFORMATION
  Report Type: Report from Study
  Country: GB (occurrence: GB)
  Receive Date: 20191226
  Receipt Date: 20200115
  Transmission Date: 20200409
  Serious: Yes (Hospitalization, Other)
  Sender: FDA-Public Use
  Company Number: GB-ROCHE-2495750

PATIENT
  Age: 60 Year
  Sex: Female

DRUGS (31)
  1. PERTUZUMAB. [Suspect]
     Active Substance: PERTUZUMAB
     Indication: BREAST CANCER METASTATIC
     Route: 042
     Dates: start: 20151215, end: 20181204
  2. DOCETAXEL. [Suspect]
     Active Substance: DOCETAXEL
     Indication: BREAST CANCER METASTATIC
     Route: 042
     Dates: start: 20151127, end: 20160308
  3. XGEVA [Concomitant]
     Active Substance: DENOSUMAB
     Route: 058
     Dates: start: 20150820
  4. LEVOFLOXACIN. [Concomitant]
     Active Substance: LEVOFLOXACIN
     Route: 048
     Dates: start: 20151130
  5. OSELTAMIVIR [Concomitant]
     Active Substance: OSELTAMIVIR
     Route: 048
     Dates: start: 20190125, end: 20190130
  6. TRASTUZUMAB EMTANSINE [Suspect]
     Active Substance: ADO-TRASTUZUMAB EMTANSINE
     Indication: BREAST CANCER METASTATIC
     Route: 042
     Dates: start: 20190214, end: 20190602
  7. PERTUZUMAB. [Suspect]
     Active Substance: PERTUZUMAB
     Route: 042
     Dates: start: 20151125, end: 20151125
  8. LOPERAMIDE [Concomitant]
     Active Substance: LOPERAMIDE
     Route: 048
     Dates: start: 20151126
  9. TRASTUZUMAB. [Suspect]
     Active Substance: TRASTUZUMAB
     Indication: BREAST CANCER METASTATIC
     Route: 042
     Dates: start: 20151217, end: 20181204
  10. DOMPERIDONE [Concomitant]
     Active Substance: DOMPERIDONE
     Route: 048
     Dates: start: 20151126
  11. CLARITHROMYCIN. [Concomitant]
     Active Substance: CLARITHROMYCIN
     Route: 042
     Dates: start: 20190614, end: 20190614
  12. CALCICHEW [Concomitant]
     Active Substance: CALCIUM CARBONATE
     Route: 048
     Dates: start: 20150723
  13. DALTEPARIN [Concomitant]
     Active Substance: DALTEPARIN
     Route: 058
     Dates: start: 20160421
  14. DEXAMETHASONE. [Concomitant]
     Active Substance: DEXAMETHASONE
     Route: 048
     Dates: start: 20151125
  15. FLUCONAZOLE. [Concomitant]
     Active Substance: FLUCONAZOLE
     Route: 048
     Dates: start: 20151130
  16. DENOSUMAB [Concomitant]
     Active Substance: DENOSUMAB
     Route: 058
     Dates: start: 20150723
  17. DIFFLAM MOUTH [Concomitant]
     Route: 048
     Dates: start: 20160411
  18. CLARITHROMYCIN. [Concomitant]
     Active Substance: CLARITHROMYCIN
     Route: 048
     Dates: start: 20190311, end: 20190317
  19. FUROSEMIDE. [Concomitant]
     Active Substance: FUROSEMIDE
     Route: 048
     Dates: start: 20190703
  20. LETROZOLE. [Suspect]
     Active Substance: LETROZOLE
     Indication: BREAST CANCER METASTATIC
     Route: 048
     Dates: start: 20150709, end: 20151015
  21. CO-AMOXICLAV [AMOXICILLIN;CLAVULANATE POTASSIUM] [Concomitant]
     Active Substance: AMOXICILLIN\CLAVULANATE POTASSIUM
     Route: 048
     Dates: start: 20151205, end: 20151208
  22. CO-AMOXICLAV [AMOXICILLIN;CLAVULANATE POTASSIUM] [Concomitant]
     Active Substance: AMOXICILLIN\CLAVULANATE POTASSIUM
     Route: 048
     Dates: start: 20190311, end: 20190317
  23. GENTAMICIN. [Concomitant]
     Active Substance: GENTAMICIN
     Route: 042
     Dates: start: 20151203, end: 20151203
  24. GENTAMICIN. [Concomitant]
     Active Substance: GENTAMICIN
     Route: 042
     Dates: start: 20190617, end: 20190617
  25. TRASTUZUMAB. [Suspect]
     Active Substance: TRASTUZUMAB
     Route: 042
     Dates: start: 20151126, end: 20151126
  26. CO-AMOXICLAV [AMOXICILLIN;CLAVULANATE POTASSIUM] [Concomitant]
     Active Substance: AMOXICILLIN\CLAVULANATE POTASSIUM
     Route: 048
     Dates: start: 20190125, end: 20190130
  27. CO-AMOXICLAV [AMOXICILLIN;CLAVULANATE POTASSIUM] [Concomitant]
     Active Substance: AMOXICILLIN\CLAVULANATE POTASSIUM
     Route: 042
     Dates: start: 20190613, end: 20190617
  28. COLECALCIFEROL [Concomitant]
     Active Substance: CHOLECALCIFEROL
     Route: 048
     Dates: start: 20151203
  29. IRON SULFATE [Concomitant]
     Active Substance: FERROUS SULFATE ANHYDROUS
     Indication: ANAEMIA
     Route: 048
  30. LANSOPRAZOLE. [Concomitant]
     Active Substance: LANSOPRAZOLE
     Indication: DYSPEPSIA
     Route: 048
     Dates: start: 20190510
  31. TAZOCIN [Concomitant]
     Active Substance: PIPERACILLIN SODIUM\TAZOBACTAM SODIUM
     Route: 042
     Dates: start: 20151203, end: 20151205

REACTIONS (3)
  - Pneumonitis [Recovered/Resolved]
  - Pulmonary embolism [Recovered/Resolved]
  - Pneumonia [Recovered/Resolved with Sequelae]

NARRATIVE: CASE EVENT DATE: 20190602
